FAERS Safety Report 15431880 (Version 1)
Quarter: 2018Q3

REPORT INFORMATION
  Report Type: Spontaneous
  Country: US (occurrence: US)
  Receive Date: 20180926
  Receipt Date: 20180926
  Transmission Date: 20181010
  Serious: No
  Sender: FDA-Public Use
  Company Number: US-ALEXION PHARMACEUTICALS INC.-A201812471

PATIENT
  Sex: Female

DRUGS (2)
  1. SOLIRIS [Suspect]
     Active Substance: ECULIZUMAB
     Indication: PAROXYSMAL NOCTURNAL HAEMOGLOBINURIA
     Dosage: UNK
     Route: 065
  2. SOLIRIS [Suspect]
     Active Substance: ECULIZUMAB
     Dosage: UNK UNK, EVERY 14 DAYS
     Route: 042

REACTIONS (5)
  - Blood urea abnormal [Unknown]
  - Globulin abnormal [Unknown]
  - Blood urea nitrogen/creatinine ratio decreased [Unknown]
  - Glomerular filtration rate abnormal [Unknown]
  - Albumin globulin ratio abnormal [Unknown]

NARRATIVE: CASE EVENT DATE: 20180913
